FAERS Safety Report 8183197 (Version 2)
Quarter: 2013Q3

REPORT INFORMATION
  Report Type: Report from Study
  Country: MX (occurrence: MX)
  Receive Date: 20111017
  Receipt Date: 20130716
  Transmission Date: 20140515
  Serious: Yes (Other)
  Sender: FDA-Public Use
  Company Number: PHHY2011MX88094

PATIENT
  Age: 63 Year
  Sex: Male

DRUGS (5)
  1. CO-DIOVAN [Suspect]
     Indication: HYPERTENSION
     Dosage: 1 DF (160/12.5MG), UNK
     Route: 048
     Dates: start: 200710
  2. CO-DIOVAN [Suspect]
     Dosage: 1 DF (320/12.5MG), DAILY
     Route: 048
  3. METFORMIN [Concomitant]
     Dosage: UNK UKN, UNK
  4. KETOSTERIL [Concomitant]
     Dosage: UNK UKN, UNK
  5. PIOGLITAZONE [Concomitant]
     Dosage: UNK UKN, UNK

REACTIONS (7)
  - Renal disorder [Not Recovered/Not Resolved]
  - Proteinuria [Unknown]
  - Blood pressure inadequately controlled [Not Recovered/Not Resolved]
  - Yellow skin [Not Recovered/Not Resolved]
  - Feeling drunk [Not Recovered/Not Resolved]
  - Dizziness [Not Recovered/Not Resolved]
  - Somnolence [Not Recovered/Not Resolved]
